FAERS Safety Report 18587977 (Version 2)
Quarter: 2020Q4

REPORT INFORMATION
  Report Type: Spontaneous
  Country: CA (occurrence: CA)
  Receive Date: 20201207
  Receipt Date: 20201216
  Transmission Date: 20210114
  Serious: Yes (Other)
  Sender: FDA-Public Use
  Company Number: CA-JNJFOC-20201148379

PATIENT
  Age: 37 Year
  Sex: Female

DRUGS (3)
  1. TOPAMAX [Suspect]
     Active Substance: TOPIRAMATE
     Indication: MIGRAINE PROPHYLAXIS
     Route: 048
  2. PROPRANOLOL [Suspect]
     Active Substance: PROPRANOLOL HYDROCHLORIDE
     Indication: MIGRAINE
     Route: 065
  3. FLUNARIZINE [Suspect]
     Active Substance: FLUNARIZINE
     Indication: MIGRAINE
     Route: 065

REACTIONS (5)
  - Drug intolerance [Unknown]
  - Contraindicated product administered [Unknown]
  - Drug ineffective [Unknown]
  - Hypotension [Unknown]
  - Arrhythmia [Unknown]
